FAERS Safety Report 4659365-8 (Version None)
Quarter: 2005Q2

REPORT INFORMATION
  Report Type: 
  Country: None (occurrence: None)
  Receive Date: 20050510
  Receipt Date: 20050427
  Transmission Date: 20051028
  Serious: Yes (Hospitalization)
  Sender: FDA-Public Use
  Company Number: 213556

PATIENT
  Age: 67 Year
  Sex: Female

DRUGS (14)
  1. MABTHERA (RITUXIMAB) CONC FOR SOLUTION FOR INFUSION [Suspect]
     Indication: NON-HODGKIN'S LYMPHOMA
     Dosage: 600 MG, INTRAVENOUS
     Route: 042
  2. DOXORUBICIN HCL [Suspect]
     Indication: NON-HODGKIN'S LYMPHOMA
     Dosage: 80 MG, INTRAVENOUS
     Route: 042
     Dates: start: 20050311, end: 20050311
  3. VINCRISTINE SULFATE [Suspect]
     Indication: NON-HODGKIN'S LYMPHOMA
     Dosage: 2 MG, INTRAVENOUS
     Route: 042
     Dates: start: 20050304, end: 20050311
  4. CYCLOPHOSPHAMIDE [Suspect]
     Indication: NON-HODGKIN'S LYMPHOMA
     Dosage: 1200 MG, INTRAVENOUS
     Route: 042
     Dates: start: 20050311, end: 20050311
  5. PREDNISONE [Suspect]
     Indication: NON-HODGKIN'S LYMPHOMA
     Dosage: 100 MG, ORAL
     Route: 048
     Dates: start: 20050304, end: 20050315
  6. METHOTREXATE [Suspect]
     Indication: NON-HODGKIN'S LYMPHOMA
     Dosage: 15 MG, INTRATHECAL
     Route: 037
     Dates: start: 20050310, end: 20050314
  7. FILGRASTIM (FILGRASTIM) [Suspect]
     Indication: NON-HODGKIN'S LYMPHOMA
     Dosage: 30 MIU, SUBCUTANEOUS
     Route: 058
     Dates: start: 20050319, end: 20050323
  8. BROMAZEPAM (BROMAZEPAM) [Concomitant]
  9. FUROSEMIDE [Concomitant]
  10. ALLOPURINOL [Concomitant]
  11. TORSEMIDE [Concomitant]
  12. CALCII CARBONAS (CALCIUM CARBONATE) [Concomitant]
  13. CHOLECALCIFEROL (CHOLECALCIFEROL) [Concomitant]
  14. PANTOZOL (PANTOPRAZOLE) [Concomitant]

REACTIONS (1)
  - AORTITIS [None]
